FAERS Safety Report 7992489-6 (Version None)
Quarter: 2011Q4

REPORT INFORMATION
  Report Type: 
  Country: None (occurrence: None)
  Receive Date: 20111219
  Receipt Date: 20111214
  Transmission Date: 20120403
  Serious: Yes (Other)
  Sender: FDA-Public Use
  Company Number: JP-B.I. PHARMACEUTICALS,INC./RIDGEFIELD-2011-BP-28146NB

PATIENT

DRUGS (1)
  1. PRADAXA [Suspect]
     Dosage: 110 MG
     Route: 048

REACTIONS (1)
  - CEREBRAL INFARCTION [None]
